FAERS Safety Report 5200957-5 (Version None)
Quarter: 2007Q1

REPORT INFORMATION
  Report Type: 
  Country: None (occurrence: None)
  Receive Date: 20070103
  Receipt Date: 20061219
  Transmission Date: 20070707
  Serious: Yes (Hospitalization)
  Sender: FDA-Public Use
  Company Number: GXKR2006GB08365

PATIENT
  Sex: Female

DRUGS (1)
  1. FLUVOXAMINE (NGX) (FLUVOXAMINE) [Suspect]
     Dosage: 9.6 G, ORAL
     Route: 048

REACTIONS (4)
  - CIRCULATORY COLLAPSE [None]
  - DRUG TOXICITY [None]
  - OVERDOSE [None]
  - STATUS EPILEPTICUS [None]
